FAERS Safety Report 20892561 (Version 1)
Quarter: 2022Q2

REPORT INFORMATION
  Report Type: Report from Study
  Country: BE (occurrence: BE)
  Receive Date: 20220531
  Receipt Date: 20220531
  Transmission Date: 20220720
  Serious: Yes (Hospitalization)
  Sender: FDA-Public Use
  Company Number: BE-ABBVIE-22K-013-4412786-00

PATIENT
  Sex: Male
  Weight: 83 kg

DRUGS (13)
  1. CARBIDOPA\LEVODOPA [Suspect]
     Active Substance: CARBIDOPA\LEVODOPA
     Indication: Parkinson^s disease
     Route: 050
     Dates: start: 20140818
  2. CARBIDOPA\LEVODOPA [Suspect]
     Active Substance: CARBIDOPA\LEVODOPA
     Dosage: MD 3.0 ML; CD 6.0 ML/HR DURING 24 HOURS; ED 1.7 ML, CND: 4.9 ML/HR
     Route: 050
     Dates: start: 20211222, end: 20220322
  3. CARBIDOPA\LEVODOPA [Suspect]
     Active Substance: CARBIDOPA\LEVODOPA
     Dosage: MD 3.0 ML; CD 5.9 ML/HR DURING 24 HOURS; ED 2.0 ML, CND: 4.9 ML/HR
     Route: 050
     Dates: start: 20220322, end: 20220525
  4. CARBIDOPA\LEVODOPA [Suspect]
     Active Substance: CARBIDOPA\LEVODOPA
     Dosage: MD 3.0 ML; CD 5.9 ML/HR DURING 24 HOURS; ED 1.7 ML, CND: 4.5 ML/HR
     Route: 050
     Dates: start: 20220525
  5. AZILECT [Concomitant]
     Active Substance: RASAGILINE MESYLATE
     Indication: Product used for unknown indication
     Dosage: AT 08:00 HRS
  6. PRAMIPEXOLE [Concomitant]
     Active Substance: PRAMIPEXOLE
     Indication: Product used for unknown indication
     Dosage: AT 08:00 HRS
  7. PRAMIPEXOLE [Concomitant]
     Active Substance: PRAMIPEXOLE
     Dosage: AT 08:00 AND 20:00 HRS
  8. BENSERAZIDE\LEVODOPA [Concomitant]
     Active Substance: BENSERAZIDE\LEVODOPA
     Indication: Product used for unknown indication
     Dosage: AT 08:00 HRS
  9. BENSERAZIDE\LEVODOPA [Concomitant]
     Active Substance: BENSERAZIDE\LEVODOPA
     Indication: Product used for unknown indication
     Dosage: 10 TABLETS IN DRINK DURING THE WHOLE DAY, EVERY HOUR
  10. BENSERAZIDE\LEVODOPA [Concomitant]
     Active Substance: BENSERAZIDE\LEVODOPA
     Dosage: 2 TO 3 TABLETS AFTER 20:00 HRS
  11. TRAZODONE HYDROCHLORIDE [Concomitant]
     Active Substance: TRAZODONE HYDROCHLORIDE
     Indication: Product used for unknown indication
     Dosage: AT 21:00 HRS
  12. XANAX [Concomitant]
     Active Substance: ALPRAZOLAM
     Indication: Product used for unknown indication
     Dosage: AT 08:00, 12:00 AND 18:00 HRS
  13. INDAPAMIDE\PERINDOPRIL [Concomitant]
     Active Substance: INDAPAMIDE\PERINDOPRIL
     Indication: Product used for unknown indication
     Dosage: 0.5 TABLET

REACTIONS (7)
  - Aggression [Recovered/Resolved]
  - Agitation [Recovered/Resolved]
  - Stoma site infection [Recovered/Resolved]
  - Muscle rigidity [Unknown]
  - Sensory overload [Unknown]
  - Weight decreased [Unknown]
  - On and off phenomenon [Unknown]
